FAERS Safety Report 9049770 (Version 3)
Quarter: 2013Q4

REPORT INFORMATION
  Report Type: Spontaneous
  Country: US (occurrence: US)
  Receive Date: 20130205
  Receipt Date: 20131004
  Transmission Date: 20140711
  Serious: Yes (Hospitalization, Other)
  Sender: FDA-Public Use
  Company Number: US-BAYER-2013-015064

PATIENT
  Age: 49 Year
  Sex: Female
  Weight: 74.83 kg

DRUGS (12)
  1. YAZ [Suspect]
     Dosage: UNK
     Dates: start: 2007, end: 2008
  2. LISINOPRIL [Concomitant]
     Indication: HYPERTENSION
     Dosage: UNK
     Dates: start: 2008
  3. SUDAFED [PSEUDOEPHEDRINE HYDROCHLORIDE] [Concomitant]
     Dosage: UNK
     Dates: start: 200807
  4. BENADRYL [ACRIVASTINE] [Concomitant]
     Dosage: UNK
     Dates: start: 2008
  5. ALDACTONE [SPIRONOLACTONE] [Concomitant]
     Dosage: UNK
     Dates: start: 2008
  6. ALBUTEROL [Concomitant]
     Dosage: MDI, P.R.N.
  7. ADVAIR [Concomitant]
     Dosage: 250/50 TWICE A DAY
  8. MULTIVITAMIN [Concomitant]
     Dosage: DAILY
  9. CLARITIN [Concomitant]
     Dosage: 10 MG, DAILY
  10. IRON FOLIC [Concomitant]
  11. TOPROL XL [Concomitant]
  12. BENAZEPRIL [Concomitant]

REACTIONS (11)
  - Cardiac failure [None]
  - Deep vein thrombosis [None]
  - Dyspnoea [None]
  - Heart rate increased [None]
  - Injury [None]
  - Pain [None]
  - General physical health deterioration [None]
  - Anxiety [None]
  - Emotional distress [None]
  - Pain [None]
  - Cholelithiasis [None]
